FAERS Safety Report 20558094 (Version 1)
Quarter: 2022Q1

REPORT INFORMATION
  Report Type: Spontaneous
  Country: JP (occurrence: JP)
  Receive Date: 20220307
  Receipt Date: 20220307
  Transmission Date: 20220423
  Serious: Yes (Life-Threatening, Hospitalization, Other)
  Sender: FDA-Public Use
  Company Number: JP-ASTELLAS-2022JP003678

PATIENT
  Age: 67 Year
  Sex: Male

DRUGS (6)
  1. TACROLIMUS [Suspect]
     Active Substance: TACROLIMUS
     Indication: Scleroderma
     Dosage: 4 MG/DAY, UNKNOWN FREQ.
     Route: 065
  2. TACROLIMUS [Suspect]
     Active Substance: TACROLIMUS
     Indication: Interstitial lung disease
  3. TACROLIMUS [Suspect]
     Active Substance: TACROLIMUS
     Indication: Antisynthetase syndrome
  4. PREDNISOLONE [Suspect]
     Active Substance: PREDNISOLONE
     Indication: Scleroderma
     Dosage: 26.5 MG/DAY, UNKNOWN FREQ.
     Route: 065
  5. PREDNISOLONE [Suspect]
     Active Substance: PREDNISOLONE
     Indication: Interstitial lung disease
  6. PREDNISOLONE [Suspect]
     Active Substance: PREDNISOLONE
     Indication: Antisynthetase syndrome

REACTIONS (1)
  - COVID-19 pneumonia [Recovered/Resolved]
